FAERS Safety Report 5671983-7 (Version None)
Quarter: 2008Q1

REPORT INFORMATION
  Report Type: 
  Country: None (occurrence: None)
  Receive Date: 20080317
  Receipt Date: 20080317
  Transmission Date: 20080703
  Serious: Yes (Other)
  Sender: FDA-Public Use
  Company Number: None

PATIENT
  Age: 32 Year
  Sex: Female
  Weight: 68.0396 kg

DRUGS (1)
  1. AVELOX [Suspect]
     Indication: SINUSITIS
     Dates: start: 20080309, end: 20080311

REACTIONS (12)
  - CONFUSIONAL STATE [None]
  - DIZZINESS [None]
  - EAR DISORDER [None]
  - EAR PAIN [None]
  - EFFUSION [None]
  - FEELING ABNORMAL [None]
  - NAUSEA [None]
  - NIGHTMARE [None]
  - PALPITATIONS [None]
  - PARANOIA [None]
  - THINKING ABNORMAL [None]
  - VERTIGO [None]
